FAERS Safety Report 24959033 (Version 1)
Quarter: 2025Q1

REPORT INFORMATION
  Report Type: Spontaneous
  Country: US (occurrence: US)
  Receive Date: 20250212
  Receipt Date: 20250212
  Transmission Date: 20250408
  Serious: Yes (Hospitalization)
  Sender: DR REDDYS
  Company Number: None

PATIENT
  Age: 41 Year
  Sex: Female

DRUGS (1)
  1. IBUPROFEN [Suspect]
     Active Substance: IBUPROFEN
     Indication: Abdominal discomfort
     Dosage: SHE HAD BEEN TAKING IBUPROFEN (600-900 MG DAILY) FOR ABOUT 2 WEEKS

REACTIONS (3)
  - Acute kidney injury [Recovered/Resolved]
  - Renal tubular injury [Recovered/Resolved]
  - End stage renal disease [Recovered/Resolved]
